FAERS Safety Report 6119265-3 (Version None)
Quarter: 2009Q1

REPORT INFORMATION
  Report Type: 
  Country: None (occurrence: None)
  Receive Date: 20090316
  Receipt Date: 20090306
  Transmission Date: 20090719
  Serious: Yes (Hospitalization)
  Sender: FDA-Public Use
  Company Number: US-ROCHE-621120

PATIENT
  Sex: Female
  Weight: 71 kg

DRUGS (13)
  1. NAPROSYN [Suspect]
     Indication: ARTHRITIS
     Route: 048
     Dates: start: 20040719, end: 20050727
  2. HUMAN INSULIN [Suspect]
     Indication: TYPE 2 DIABETES MELLITUS
     Dosage: DRUG REPORTED AS ^INHALED HUMAN INSULIN (INHALED HUMAN INSULIN)^
     Route: 055
     Dates: start: 20021119, end: 20080817
  3. ISOPHANE INSULIN [Suspect]
     Indication: TYPE 2 DIABETES MELLITUS
     Dosage: 36 UNITS QAM
     Route: 058
     Dates: start: 20021119
  4. ISOPHANE INSULIN [Suspect]
     Dosage: 55 UNITS QPM
     Route: 058
     Dates: start: 20030825
  5. ISOPHANE INSULIN [Suspect]
     Dosage: 15 UNITS QPM
     Route: 058
     Dates: start: 20021119, end: 20030522
  6. ISOPHANE INSULIN [Suspect]
     Dosage: 53 UNITS QPM
     Route: 058
     Dates: start: 20030523, end: 20030824
  7. LIPITOR [Concomitant]
     Dates: start: 19990101
  8. TRICOR [Concomitant]
     Dates: start: 20020101
  9. LISINOPRIL [Concomitant]
     Dates: start: 19920101
  10. EVISTA [Concomitant]
     Dates: start: 19990101
  11. CALCIUM [Concomitant]
     Dates: start: 19970101
  12. TYLENOL [Concomitant]
     Dates: start: 19980101
  13. VERAPAMIL [Concomitant]
     Dates: start: 20041020

REACTIONS (1)
  - DUODENAL ULCER HAEMORRHAGE [None]
